FAERS Safety Report 8163642 (Version 2)
Quarter: 2015Q2

REPORT INFORMATION
  Report Type: Spontaneous
  Country: US (occurrence: US)
  Receive Date: 20110930
  Receipt Date: 20150604
  Transmission Date: 20150821
  Serious: Yes (Hospitalization, Disabling)
  Sender: FDA-Public Use
  Company Number: US-BAYER-2011-092409

PATIENT
  Age: 31 Year
  Sex: Female
  Weight: 108.84 kg

DRUGS (18)
  1. EFFEXOR XR [Concomitant]
     Active Substance: VENLAFAXINE HYDROCHLORIDE
     Dosage: UNK
     Dates: start: 20021119, end: 20030206
  2. TRIAMTERENE AND HYDROCHLOROTHIAZIDE [Concomitant]
     Active Substance: HYDROCHLOROTHIAZIDE\TRIAMTERENE
     Dosage: 37.5MG / 25MG, QD
     Dates: start: 20040414
  3. STATIN [Concomitant]
     Active Substance: UNSPECIFIED INGREDIENT
  4. TOPROL XL [Concomitant]
     Active Substance: METOPROLOL SUCCINATE
  5. YASMIN [Suspect]
     Active Substance: DROSPIRENONE\ETHINYL ESTRADIOL
     Indication: CONTRACEPTION
     Dosage: UNK
     Route: 048
     Dates: start: 20030330, end: 20041008
  6. ACETYLSALICYLIC ACID [Concomitant]
     Active Substance: ASPIRIN
     Dosage: 325 MG, QD
     Route: 048
  7. ZOLOFT [Concomitant]
     Active Substance: SERTRALINE HYDROCHLORIDE
  8. CIPROFLOXACIN. [Concomitant]
     Active Substance: CIPROFLOXACIN
  9. HYDROCODONE W/ACETAMINOPHEN [Concomitant]
     Active Substance: ACETAMINOPHEN\HYDROCODONE BITARTRATE
     Dosage: 7.5-750 MG
     Route: 048
     Dates: start: 20041004
  10. SYNTHROID [Concomitant]
     Active Substance: LEVOTHYROXINE SODIUM
     Dosage: UNK UNK, QD
     Route: 048
     Dates: start: 2000
  11. PREVACID [Concomitant]
     Active Substance: LANSOPRAZOLE
     Dosage: 30 MG, QD
     Route: 048
  12. ZESTRIL [Concomitant]
     Active Substance: LISINOPRIL
     Dosage: 30 MG, HS
     Route: 048
  13. LIPITOR [Concomitant]
     Active Substance: ATORVASTATIN CALCIUM
  14. YASMIN [Suspect]
     Active Substance: DROSPIRENONE\ETHINYL ESTRADIOL
     Indication: CONTRACEPTION
     Route: 048
  15. WELLBUTRIN SR [Concomitant]
     Active Substance: BUPROPION HYDROCHLORIDE
     Dosage: 150 MG, UNK
  16. PAXIL [Concomitant]
     Active Substance: PAROXETINE HYDROCHLORIDE
  17. ZITHROMAX [Concomitant]
     Active Substance: AZITHROMYCIN DIHYDRATE
     Dosage: 250 MG, UNK
     Route: 048
     Dates: start: 20041004
  18. PERCOCET [Concomitant]
     Active Substance: ACETAMINOPHEN\OXYCODONE HYDROCHLORIDE
     Indication: PAIN

REACTIONS (8)
  - Pain [None]
  - Emotional distress [None]
  - Injury [None]
  - Chest pain [None]
  - Depression [None]
  - Myocardial infarction [None]
  - Dyspnoea [None]
  - Asthenia [None]

NARRATIVE: CASE EVENT DATE: 2001
